FAERS Safety Report 5296068-3 (Version None)
Quarter: 2007Q2

REPORT INFORMATION
  Report Type: 
  Country: None (occurrence: None)
  Receive Date: 20070413
  Receipt Date: 20070302
  Transmission Date: 20071010
  Serious: Yes (Death, Other)
  Sender: FDA-Public Use
  Company Number: FR-BRISTOL-MYERS SQUIBB COMPANY-13744594

PATIENT
  Age: 53 Year
  Sex: Male

DRUGS (4)
  1. LYSODREN [Suspect]
     Indication: ADRENOCORTICAL CARCINOMA
     Route: 048
     Dates: start: 20060621, end: 20061230
  2. HYDROCORTISONE [Concomitant]
     Indication: ADRENAL INSUFFICIENCY
     Dates: start: 20060621
  3. SERETIDE [Concomitant]
     Indication: ASTHMA
  4. ATACAND [Concomitant]
     Indication: HYPERTENSION

REACTIONS (3)
  - CHOLESTASIS [None]
  - DEATH [None]
  - PROTHROMBIN LEVEL DECREASED [None]
